FAERS Safety Report 12264363 (Version 1)
Quarter: 2016Q2

REPORT INFORMATION
  Report Type: Not Available
  Country: US (occurrence: US)
  Receive Date: 20160413
  Receipt Date: 20160413
  Transmission Date: 20160815
  Serious: No
  Sender: FDA-Public Use
  Company Number: US-HISAMITSU-2015-US-000594

PATIENT
  Age: 75 Year
  Sex: Male
  Weight: 70.31 kg

DRUGS (4)
  1. SALONPAS PAIN RELIEF [Suspect]
     Active Substance: MENTHOL\METHYL SALICYLATE
     Dosage: 1 PATCH
     Route: 061
     Dates: start: 20151121, end: 20151121
  2. RAPAFLO [Concomitant]
     Active Substance: SILODOSIN
  3. BABY ASPIRIN [Concomitant]
     Active Substance: ASPIRIN
  4. ATORVASTATIN [Concomitant]
     Active Substance: ATORVASTATIN

REACTIONS (4)
  - Medication error [Unknown]
  - Application site irritation [Unknown]
  - Application site exfoliation [Unknown]
  - Application site erythema [Unknown]

NARRATIVE: CASE EVENT DATE: 20151121
